FAERS Safety Report 18082855 (Version 1)
Quarter: 2020Q3

REPORT INFORMATION
  Report Type: Report from Study
  Country: US (occurrence: US)
  Receive Date: 20200729
  Receipt Date: 20200729
  Transmission Date: 20201103
  Serious: Yes (Hospitalization, Other)
  Sender: FDA-Public Use
  Company Number: US-AUROBINDO-AUR-APL-2020-036198

PATIENT

DRUGS (1)
  1. VINCRISTINE SULFATE. [Suspect]
     Active Substance: VINCRISTINE SULFATE
     Indication: NON-HODGKIN^S LYMPHOMA
     Dosage: UNK
     Route: 065

REACTIONS (20)
  - Tachycardia [Recovered/Resolved]
  - Diarrhoea [Recovered/Resolved]
  - Blood alkaline phosphatase [Unknown]
  - Alanine aminotransferase [Unknown]
  - Dyspepsia [Recovered/Resolved]
  - Aspartate aminotransferase [Unknown]
  - Hypertension [Unknown]
  - Hypophosphataemia [Unknown]
  - Ileus [Unknown]
  - Abdominal pain [Recovered/Resolved]
  - Anaemia [Unknown]
  - Hypocalcaemia [Unknown]
  - Abdominal distension [Recovered/Resolved]
  - Chills [Recovered/Resolved]
  - Hyponatraemia [Unknown]
  - Infusion related reaction [Recovered/Resolved]
  - Constipation [Recovered/Resolved]
  - Pyrexia [Recovered/Resolved]
  - Glaucoma [Unknown]
  - Lymphocyte count [Unknown]

NARRATIVE: CASE EVENT DATE: 20030101
